FAERS Safety Report 14294208 (Version 5)
Quarter: 2019Q4

REPORT INFORMATION
  Report Type: Report from Study
  Country: CA (occurrence: CA)
  Receive Date: 20171217
  Receipt Date: 20191128
  Transmission Date: 20200122
  Serious: Yes (Other)
  Sender: FDA-Public Use
  Company Number: PHHY2017CA188135

PATIENT
  Age: 82 Year
  Sex: Male

DRUGS (9)
  1. ENTRESTO [Suspect]
     Active Substance: SACUBITRIL\VALSARTAN
     Dosage: 2 DF, UNK (SACUBITRIL 97MG/ VALSARTAN 103MG)
     Route: 065
     Dates: start: 20170606, end: 20171005
  2. ENTRESTO [Suspect]
     Active Substance: SACUBITRIL\VALSARTAN
     Indication: CARDIAC FAILURE
     Dosage: 2 DF, UNK (SACUBITRIL 49MG/VALSARTAN 51MG)
     Route: 065
     Dates: start: 20170413, end: 20170606
  3. ENTRESTO [Suspect]
     Active Substance: SACUBITRIL\VALSARTAN
     Dosage: 2 DF, UNK (SACUBITRIL 49MG/VALSARTAN 51MG)
     Route: 065
     Dates: start: 20171005, end: 20180605
  4. ENTRESTO [Suspect]
     Active Substance: SACUBITRIL\VALSARTAN
     Dosage: 2 DF (SACUBITRIL 49 MG AND VALSARTAN 51 MG), UNK
     Route: 065
     Dates: start: 20180717, end: 20180808
  5. ENTRESTO [Suspect]
     Active Substance: SACUBITRIL\VALSARTAN
     Dosage: 2 DF (SACUBITRIL 24 MG AND VALSARTAN 26 MG), UNK
     Route: 065
     Dates: start: 20180613, end: 20180717
  6. ENTRESTO [Suspect]
     Active Substance: SACUBITRIL\VALSARTAN
     Dosage: 2 DF (SACUBITRIL 97 MG AND VALSARTAN 103 MG), UNK
     Route: 065
     Dates: start: 20180809, end: 20180907
  7. ENTRESTO [Suspect]
     Active Substance: SACUBITRIL\VALSARTAN
     Dosage: 2 DF (SACUBITRIL 49 MG AND VALSARTAN 51 MG), UNK
     Route: 065
     Dates: start: 20180907, end: 20181029
  8. ENTRESTO [Suspect]
     Active Substance: SACUBITRIL\VALSARTAN
     Dosage: 2 DF (SACUBITRIL 97 MG AND VALSARTAN 103 MG)
     Route: 065
     Dates: start: 20190912
  9. ENTRESTO [Suspect]
     Active Substance: SACUBITRIL\VALSARTAN
     Dosage: 2 DF (SACUBITRIL 49 MG AND VALSARTAN 51 MG), UNK
     Route: 065
     Dates: start: 20181029, end: 20190912

REACTIONS (8)
  - Pulmonary oedema [Recovering/Resolving]
  - Dyspnoea [Not Recovered/Not Resolved]
  - Wrong technique in product usage process [Not Recovered/Not Resolved]
  - Peripheral swelling [Recovered/Resolved]
  - Diarrhoea [Unknown]
  - Normocytic anaemia [Unknown]
  - Urinary tract infection [Recovered/Resolved]
  - Dizziness [Recovered/Resolved]

NARRATIVE: CASE EVENT DATE: 20170523
